FAERS Safety Report 8147103-6 (Version None)
Quarter: 2012Q1

REPORT INFORMATION
  Report Type: 
  Country: None (occurrence: None)
  Receive Date: 20120218
  Receipt Date: 20110117
  Transmission Date: 20120608
  Serious: Yes (Other)
  Sender: FDA-Public Use
  Company Number: US-ALLERGAN-1100660US

PATIENT
  Age: 79 Year
  Sex: Female

DRUGS (2)
  1. BOTULINUM TOXIN TYPE A [Suspect]
     Indication: TORTICOLLIS
     Dosage: 3 VIALS
     Route: 030
     Dates: start: 20100916, end: 20100916
  2. BOTULINUM TOXIN TYPE A [Suspect]
     Dosage: 135 UNITS, SINGLE
     Route: 030
     Dates: start: 20101220, end: 20101220

REACTIONS (3)
  - INFLUENZA LIKE ILLNESS [None]
  - DYSPHAGIA [None]
  - MUSCULAR WEAKNESS [None]
